FAERS Safety Report 15640677 (Version 1)
Quarter: 2018Q4

REPORT INFORMATION
  Report Type: Spontaneous
  Country: US (occurrence: US)
  Receive Date: 20181120
  Receipt Date: 20181120
  Transmission Date: 20190205
  Serious: No
  Sender: FDA-Public Use
  Company Number: US-GILEAD-2018-0373378

PATIENT
  Sex: Male

DRUGS (1)
  1. TRUVADA [Suspect]
     Active Substance: EMTRICITABINE\TENOFOVIR DISOPROXIL FUMARATE
     Indication: PROPHYLAXIS AGAINST HIV INFECTION
     Dosage: UNK
     Route: 065
     Dates: start: 20181102

REACTIONS (5)
  - Pain [Recovered/Resolved]
  - Product dispensing error [Unknown]
  - Paraesthesia [Unknown]
  - Suspected counterfeit product [Unknown]
  - Pruritus [Unknown]

NARRATIVE: CASE EVENT DATE: 20181103
